FAERS Safety Report 23704655 (Version 2)
Quarter: 2024Q2

REPORT INFORMATION
  Report Type: Spontaneous
  Country: JP (occurrence: JP)
  Receive Date: 20240404
  Receipt Date: 20240618
  Transmission Date: 20240716
  Serious: Yes (Other)
  Sender: FDA-Public Use
  Company Number: JP-ONO-2024JP005845

PATIENT
  Age: 9 Decade
  Sex: Male

DRUGS (20)
  1. OPDIVO [Suspect]
     Active Substance: NIVOLUMAB
     Indication: Gastric cancer
     Dosage: 360 MG, Q3W
     Route: 041
     Dates: start: 20230210, end: 20231018
  2. NESINA [Concomitant]
     Active Substance: ALOGLIPTIN BENZOATE
     Indication: Diabetes mellitus
     Route: 048
     Dates: end: 20231208
  3. OXALIPLATIN [Concomitant]
     Active Substance: OXALIPLATIN
     Indication: Gastric cancer
     Dosage: UNK
     Dates: start: 20230210
  4. TS-1 [Concomitant]
     Active Substance: GIMERACIL\OTERACIL POTASSIUM\TEGAFUR
     Indication: Gastric cancer
     Dosage: UNK
     Dates: start: 20230210
  5. VONOPRAZAN FUMARATE [Concomitant]
     Active Substance: VONOPRAZAN FUMARATE
     Indication: Product used for unknown indication
  6. NICORANDIL [Concomitant]
     Active Substance: NICORANDIL
     Indication: Product used for unknown indication
  7. CARVEDILOL [Concomitant]
     Active Substance: CARVEDILOL
     Indication: Product used for unknown indication
  8. PITAVASTATIN CALCIUM [Concomitant]
     Active Substance: PITAVASTATIN CALCIUM
     Indication: Product used for unknown indication
  9. LOSARTAN POTASSIUM [Concomitant]
     Active Substance: LOSARTAN POTASSIUM
     Indication: Product used for unknown indication
  10. SPIRONOLACTONE [Concomitant]
     Active Substance: SPIRONOLACTONE
     Indication: Product used for unknown indication
  11. MIGLITOL [Concomitant]
     Active Substance: MIGLITOL
     Indication: Product used for unknown indication
  12. VERQUVO [Concomitant]
     Active Substance: VERICIGUAT
     Indication: Product used for unknown indication
  13. DESLORATADINE [Concomitant]
     Active Substance: DESLORATADINE
     Indication: Product used for unknown indication
  14. MITIGLINIDE [Concomitant]
     Active Substance: MITIGLINIDE
     Indication: Product used for unknown indication
  15. CLOPIDOGREL [Concomitant]
     Active Substance: CLOPIDOGREL BISULFATE
     Indication: Product used for unknown indication
  16. PROPOFOL [Concomitant]
     Active Substance: PROPOFOL
     Indication: Product used for unknown indication
  17. FENTANYL [Concomitant]
     Active Substance: FENTANYL\FENTANYL CITRATE
     Indication: Product used for unknown indication
  18. PIPERACILLIN SODIUM\TAZOBACTAM SODIUM [Concomitant]
     Active Substance: PIPERACILLIN SODIUM\TAZOBACTAM SODIUM
     Indication: Product used for unknown indication
  19. NOREPINEPHRINE [Concomitant]
     Active Substance: NOREPINEPHRINE\NOREPINEPHRINE BITARTRATE
     Indication: Product used for unknown indication
  20. THROMBOMODULIN ALFA [Concomitant]
     Active Substance: THROMBOMODULIN ALFA
     Indication: Product used for unknown indication

REACTIONS (2)
  - Pemphigoid [Recovering/Resolving]
  - Mechanical ileus [Unknown]

NARRATIVE: CASE EVENT DATE: 20231217
